FAERS Safety Report 5334987-X (Version None)
Quarter: 2007Q2

REPORT INFORMATION
  Report Type: 
  Country: None (occurrence: None)
  Receive Date: 20070525
  Receipt Date: 20070515
  Transmission Date: 20071010
  Serious: Yes (Other)
  Sender: FDA-Public Use
  Company Number: US-ELI_LILLY_AND_COMPANY-US200705003868

PATIENT
  Age: 66 Year
  Sex: Male

DRUGS (4)
  1. CYMBALTA [Suspect]
     Dosage: 60 MG, DAILY (1/D)
     Dates: start: 20070101
  2. CYMBALTA [Suspect]
     Dosage: 30 MG, DAILY (1/D)
     Dates: start: 20070101, end: 20070101
  3. THYROID TAB [Concomitant]
     Indication: THYROID DISORDER
  4. FLUDROCORTISONE ACETATE [Concomitant]
     Indication: HYPOTENSION
     Dosage: UNK, AS NEEDED

REACTIONS (2)
  - ASPIRATION [None]
  - EATING DISORDER [None]
